FAERS Safety Report 11717033 (Version 2)
Quarter: 2015Q4

REPORT INFORMATION
  Report Type: Spontaneous
  Country: CN (occurrence: CN)
  Receive Date: 20151109
  Receipt Date: 20151120
  Transmission Date: 20160304
  Serious: Yes (Hospitalization, Other)
  Sender: FDA-Public Use
  Company Number: CN-PFIZER INC-2015374403

PATIENT
  Age: 80 Year
  Sex: Male

DRUGS (2)
  1. CELECOXIB. [Suspect]
     Active Substance: CELECOXIB
     Indication: BONE PAIN
     Dosage: 0.2 G, 2X/DAY
     Route: 048
     Dates: start: 20131001, end: 20131007
  2. ESTRACYT [Concomitant]
     Active Substance: ESTRAMUSTINE PHOSPHATE SODIUM
     Indication: PROSTATE CANCER
     Dosage: 140 MG, 2X/DAY
     Route: 048
     Dates: start: 20130501, end: 20131022

REACTIONS (3)
  - Pneumoperitoneum [Unknown]
  - Gastric perforation [Recovered/Resolved]
  - Product use issue [Recovered/Resolved]

NARRATIVE: CASE EVENT DATE: 20131001
